FAERS Safety Report 24678544 (Version 1)
Quarter: 2024Q4

REPORT INFORMATION
  Report Type: Report from Study
  Country: US (occurrence: US)
  Receive Date: 20241129
  Receipt Date: 20241129
  Transmission Date: 20250115
  Serious: Yes (Other)
  Sender: ALEXION PHARMACEUTICALS
  Company Number: US-AstraZeneca-CH-00755042A

PATIENT

DRUGS (8)
  1. CAPIVASERTIB [Suspect]
     Active Substance: CAPIVASERTIB
     Dosage: TAKE 2 TABLETS BY MOUTH TWICE DAILY (EVERY 12 HOURS) FOR 4 CONSECUTIVE DAYS, FOLLOWED BY 3 DAYS  OFF
  2. CAPIVASERTIB [Suspect]
     Active Substance: CAPIVASERTIB
     Dosage: TAKE 2 TABLETS BY MOUTH TWICE DAILY (EVERY 12 HOURS) FOR 4 CONSECUTIVE DAYS, FOLLOWED BY 3 DAYS  OFF
  3. CAPIVASERTIB [Suspect]
     Active Substance: CAPIVASERTIB
     Dosage: TAKE 2 TABLETS BY MOUTH TWICE DAILY (EVERY 12 HOURS) FOR 4 CONSECUTIVE DAYS, FOLLOWED BY 3 DAYS  OFF
  4. CAPIVASERTIB [Suspect]
     Active Substance: CAPIVASERTIB
     Dosage: TAKE 2 TABLETS BY MOUTH TWICE DAILY (EVERY 12 HOURS) FOR 4 CONSECUTIVE DAYS, FOLLOWED BY 3 DAYS  OFF
  5. LIDOCAINE [Concomitant]
     Active Substance: LIDOCAINE
     Route: 065
  6. LIDOCAINE [Concomitant]
     Active Substance: LIDOCAINE
  7. LIDOCAINE [Concomitant]
     Active Substance: LIDOCAINE
     Route: 065
  8. LIDOCAINE [Concomitant]
     Active Substance: LIDOCAINE

REACTIONS (9)
  - Syncope [Unknown]
  - Diarrhoea [Unknown]
  - Anaemia [Unknown]
  - Dizziness [Unknown]
  - Anal fissure [Unknown]
  - Headache [Unknown]
  - Anorectal discomfort [Unknown]
  - Gastrointestinal pain [Unknown]
  - Blood glucose decreased [Unknown]
